FAERS Safety Report 19882087 (Version 1)
Quarter: 2021Q3

REPORT INFORMATION
  Report Type: Spontaneous
  Country: BE (occurrence: BE)
  Receive Date: 20210924
  Receipt Date: 20210924
  Transmission Date: 20211014
  Serious: Yes (Other)
  Sender: FDA-Public Use
  Company Number: BE-TAKEDA-2021TUS058580

PATIENT
  Age: 44 Year
  Sex: Male

DRUGS (8)
  1. COAGULATION FACTOR VIII (PLASMA DERIVED) [Suspect]
     Active Substance: ANTIHEMOPHILIC FACTOR HUMAN
     Indication: FACTOR VIII DEFICIENCY
     Dosage: UNK UNK, 1/WEEK
     Route: 065
  2. COAGULATION FACTOR VIII (RECOMBINANT) [Suspect]
     Active Substance: ANTIHEMOPHILIC FACTOR, HUMAN RECOMBINANT
     Indication: FACTOR VIII DEFICIENCY
     Dosage: UNK UNK, 1/WEEK
     Route: 065
  3. COAGULATION FACTOR VIII (RECOMBINANT) [Suspect]
     Active Substance: ANTIHEMOPHILIC FACTOR, HUMAN RECOMBINANT
     Indication: FACTOR VIII DEFICIENCY
     Dosage: UNK UNK, 1/WEEK
     Route: 065
  4. COAGULATION FACTOR VIII (RECOMBINANT) [Suspect]
     Active Substance: ANTIHEMOPHILIC FACTOR, HUMAN RECOMBINANT
     Indication: PROPHYLAXIS
  5. COAGULATION FACTOR VIII (RECOMBINANT) [Suspect]
     Active Substance: ANTIHEMOPHILIC FACTOR, HUMAN RECOMBINANT
     Indication: PROPHYLAXIS
  6. COAGULATION FACTOR VIII (RECOMBINANT) [Suspect]
     Active Substance: ANTIHEMOPHILIC FACTOR, HUMAN RECOMBINANT
     Indication: PROPHYLAXIS
  7. COAGULATION FACTOR VIII (PLASMA DERIVED) [Suspect]
     Active Substance: ANTIHEMOPHILIC FACTOR HUMAN
     Indication: PROPHYLAXIS
  8. COAGULATION FACTOR VIII (RECOMBINANT) [Suspect]
     Active Substance: ANTIHEMOPHILIC FACTOR, HUMAN RECOMBINANT
     Indication: FACTOR VIII DEFICIENCY
     Dosage: UNK UNK, 1/WEEK
     Route: 065

REACTIONS (1)
  - Drug ineffective [Unknown]
